FAERS Safety Report 7988375 (Version 3)
Quarter: 2013Q1

REPORT INFORMATION
  Report Type: Spontaneous
  Country: US (occurrence: US)
  Receive Date: 20110613
  Receipt Date: 20130206
  Transmission Date: 20140127
  Serious: Yes (Other)
  Sender: FDA-Public Use
  Company Number: US-PFIZER INC-2011127216

PATIENT
  Age: 80 Year
  Sex: Female
  Weight: 49.89 kg

DRUGS (1)
  1. PREPARATION H HYDROCORTISONE [Suspect]
     Dosage: UNK, ONCE A MONTH
     Dates: start: 2011

REACTIONS (1)
  - Rectal haemorrhage [Unknown]
